FAERS Safety Report 22530709 (Version 3)
Quarter: 2024Q4

REPORT INFORMATION
  Report Type: Spontaneous
  Country: US (occurrence: US)
  Receive Date: 20230607
  Receipt Date: 20241202
  Transmission Date: 20250115
  Serious: No
  Sender: SANOFI AVENTIS
  Company Number: US-SA-SAC20230606000482

PATIENT
  Age: 59 Year
  Sex: Male
  Weight: 126.82 kg

DRUGS (1)
  1. DUPIXENT [Suspect]
     Active Substance: DUPILUMAB
     Indication: Dermatitis atopic
     Dosage: 300 MG, QOW
     Route: 058

REACTIONS (4)
  - Hypertension [Unknown]
  - Pain [Unknown]
  - Inflammation [Unknown]
  - Headache [Unknown]

NARRATIVE: CASE EVENT DATE: 20230531
